FAERS Safety Report 5870700-5 (Version None)
Quarter: 2008Q3

REPORT INFORMATION
  Report Type: 
  Country: None (occurrence: None)
  Receive Date: 20080904
  Receipt Date: 20080904
  Transmission Date: 20090109
  Serious: Yes (Hospitalization)
  Sender: FDA-Public Use
  Company Number: PHEH1997US03877

PATIENT
  Sex: Female
  Weight: 66 kg

DRUGS (8)
  1. NEORAL [Suspect]
     Route: 048
     Dates: start: 19951017
  2. IMURAN [Concomitant]
  3. PREDNISONE [Concomitant]
  4. NIFEDIPINE [Concomitant]
  5. NIZATIDINE [Concomitant]
  6. FLUVASTATIN [Concomitant]
  7. ASPIRIN [Concomitant]
  8. NPH INSULIN (INSULIN INJECTION, ISOPHANE) [Concomitant]

REACTIONS (1)
  - VIRAL INFECTION [None]
